FAERS Safety Report 6764158-1 (Version None)
Quarter: 2010Q2

REPORT INFORMATION
  Report Type: 
  Country: None (occurrence: None)
  Receive Date: 20100610
  Receipt Date: 20100607
  Transmission Date: 20101027
  Serious: Yes (Hospitalization)
  Sender: FDA-Public Use
  Company Number: A0863348A

PATIENT
  Age: 28 Year
  Sex: Female

DRUGS (4)
  1. LAMICTAL [Suspect]
     Dosage: 200MG PER DAY
     Route: 048
     Dates: start: 20060101
  2. MAGNESIUM OXIDE [Concomitant]
  3. VALIUM [Concomitant]
  4. LAMICTAL [Concomitant]
     Dosage: 200MG SEE DOSAGE TEXT
     Route: 048

REACTIONS (7)
  - AURA [None]
  - CONVULSION [None]
  - DRUG EXPOSURE DURING PREGNANCY [None]
  - FALL [None]
  - GRAND MAL CONVULSION [None]
  - TREMOR [None]
  - ULCER HAEMORRHAGE [None]
